FAERS Safety Report 12595853 (Version 1)
Quarter: 2016Q3

REPORT INFORMATION
  Report Type: Spontaneous
  Country: HR (occurrence: HR)
  Receive Date: 20160727
  Receipt Date: 20160727
  Transmission Date: 20161109
  Serious: Yes (Hospitalization)
  Sender: FDA-Public Use
  Company Number: HR-CIPLA LTD.-2016HR09937

PATIENT

DRUGS (5)
  1. BIPERIDEN [Concomitant]
     Active Substance: BIPERIDEN
     Indication: SCHIZOPHRENIA
     Dosage: 2 MG (1, 0, 0)
     Route: 065
  2. MODITEN DEPO [Concomitant]
     Indication: SCHIZOPHRENIA
     Dosage: 25 MG, AMPOULES, EVERY 4 WEEKS
     Route: 030
  3. AKINETON [Concomitant]
     Active Substance: BIPERIDEN HYDROCHLORIDE
     Indication: SCHIZOPHRENIA
     Dosage: 5 MG, AMPOULES, EVERY 4 WEEKS
     Route: 030
  4. DIAZEPAM. [Concomitant]
     Active Substance: DIAZEPAM
     Indication: SCHIZOPHRENIA
     Dosage: 5 MG, BID (1, 0, 1)
     Route: 048
  5. RISPERIDONE. [Suspect]
     Active Substance: RISPERIDONE
     Indication: SCHIZOPHRENIA
     Dosage: 2 MG, QD (0,0,1)
     Route: 048

REACTIONS (3)
  - Mood altered [Recovered/Resolved]
  - Disease progression [Unknown]
  - Activities of daily living impaired [Recovered/Resolved]
